FAERS Safety Report 5812644-0 (Version None)
Quarter: 2008Q3

REPORT INFORMATION
  Report Type: 
  Country: None (occurrence: None)
  Receive Date: 20080714
  Receipt Date: 20080714
  Transmission Date: 20090109
  Serious: Yes (Life-Threatening, Hospitalization)
  Sender: FDA-Public Use
  Company Number: None

PATIENT
  Age: 51 Year
  Sex: Male
  Weight: 121.564 kg

DRUGS (1)
  1. DIGITEK 0.25 MG BERTEK [Suspect]
     Dosage: FULL DOSE 1X DAY; CHANGED TO HALF DOSE 1X DAY

REACTIONS (17)
  - ARTERIOSPASM CORONARY [None]
  - ASTHENIA [None]
  - CHEST PAIN [None]
  - DIZZINESS [None]
  - DYSPNOEA [None]
  - EYE DISORDER [None]
  - EYE SWELLING [None]
  - FEELING ABNORMAL [None]
  - FURUNCLE [None]
  - HEART RATE IRREGULAR [None]
  - PALPITATIONS [None]
  - PHARMACEUTICAL PRODUCT COMPLAINT [None]
  - PURULENT DISCHARGE [None]
  - RASH PAPULAR [None]
  - VENTRICULAR TACHYCARDIA [None]
  - VISION BLURRED [None]
  - VISUAL IMPAIRMENT [None]
